FAERS Safety Report 7964785-X (Version None)
Quarter: 2011Q4

REPORT INFORMATION
  Report Type: 
  Country: None (occurrence: None)
  Receive Date: 20111206
  Receipt Date: 20111206
  Transmission Date: 20120403
  Serious: No
  Sender: FDA-Public Use
  Company Number: None

PATIENT
  Sex: Male

DRUGS (2)
  1. RIBASPHERE [Suspect]
     Dosage: 600MG BID PO
     Route: 048
     Dates: start: 20111112, end: 20111202
  2. PEGASYS [Suspect]
     Dosage: 180MCG QW SQ
     Route: 058
     Dates: start: 20111112, end: 20111202

REACTIONS (2)
  - MOOD SWINGS [None]
  - HAEMORRHOIDS [None]
